FAERS Safety Report 10164363 (Version 1)
Quarter: 2014Q2

REPORT INFORMATION
  Report Type: Spontaneous
  Country: US (occurrence: US)
  Receive Date: 20140510
  Receipt Date: 20140510
  Transmission Date: 20141212
  Serious: No
  Sender: FDA-Public Use
  Company Number: US-BRISTOL-MYERS SQUIBB COMPANY-19494426

PATIENT
  Age: 57 Year
  Sex: Female
  Weight: 93.42 kg

DRUGS (21)
  1. BYDUREON [Suspect]
     Dates: start: 201307
  2. SYNTHROID [Concomitant]
  3. METFORMIN [Concomitant]
  4. PRISTIQ [Concomitant]
  5. ATORVASTATIN [Concomitant]
  6. FENOFIBRATE [Concomitant]
  7. TRAZODONE HCL [Concomitant]
  8. GABAPENTIN [Concomitant]
  9. ZEGERID [Concomitant]
  10. CLONAZEPAM [Concomitant]
  11. ZYRTEC [Concomitant]
  12. TRIAMTERENE + HCTZ [Concomitant]
  13. BORAGE OIL [Concomitant]
  14. BLACK COHOSH [Concomitant]
  15. FLAXSEED OIL [Concomitant]
  16. BIOTIN [Concomitant]
  17. COQ10 [Concomitant]
  18. VITAMIN B12 [Concomitant]
  19. VITAMIN B COMPLEX [Concomitant]
  20. VITAMIN D3 [Concomitant]
  21. CITRACAL [Concomitant]

REACTIONS (3)
  - Injection site haemorrhage [Recovered/Resolved]
  - Injection site pain [Unknown]
  - Impaired gastric emptying [Unknown]
